FAERS Safety Report 5148061-9 (Version None)
Quarter: 2006Q4

REPORT INFORMATION
  Report Type: 
  Country: None (occurrence: None)
  Receive Date: 20061110
  Receipt Date: 20060926
  Transmission Date: 20070319
  Serious: Yes (Other)
  Sender: FDA-Public Use
  Company Number: PT-BRISTOL-MYERS SQUIBB COMPANY-13523097

PATIENT
  Sex: Female

DRUGS (5)
  1. PRAVACHOL [Suspect]
     Dates: start: 20060601
  2. HYTACAND [Concomitant]
     Dates: start: 20060301
  3. SERTRALINE [Concomitant]
     Dates: start: 20030101
  4. EVISTA [Concomitant]
     Dates: start: 20060901
  5. SIMVASTATIN [Concomitant]

REACTIONS (1)
  - PANCYTOPENIA [None]
